FAERS Safety Report 12920548 (Version 1)
Quarter: 2016Q4

REPORT INFORMATION
  Report Type: Spontaneous
  Country: ZA (occurrence: ZA)
  Receive Date: 20161108
  Receipt Date: 20161108
  Transmission Date: 20170207
  Serious: Yes (Death, Other)
  Sender: FDA-Public Use
  Company Number: PHHY2016ZA152558

PATIENT
  Age: 42 Year
  Sex: Female

DRUGS (1)
  1. SANDOSTATIN LAR DEPOT [Suspect]
     Active Substance: OCTREOTIDE ACETATE
     Indication: NEUROENDOCRINE CARCINOMA
     Dosage: 20 MG, (EVERY 2 WEEKS)
     Route: 065

REACTIONS (4)
  - Death [Fatal]
  - Oedema [Unknown]
  - Inappropriate schedule of drug administration [Unknown]
  - Haemoglobin decreased [Unknown]
